FAERS Safety Report 5974329-X (Version None)
Quarter: 2008Q4

REPORT INFORMATION
  Report Type: 
  Country: None (occurrence: None)
  Receive Date: 20081201
  Receipt Date: 20081128
  Transmission Date: 20090506
  Serious: No
  Sender: FDA-Public Use
  Company Number: US-PFIZER INC-2008090412

PATIENT

DRUGS (1)
  1. LYRICA [Suspect]

REACTIONS (1)
  - VISION BLURRED [None]
